FAERS Safety Report 16907610 (Version 2)
Quarter: 2019Q4

REPORT INFORMATION
  Report Type: Spontaneous
  Country: US (occurrence: US)
  Receive Date: 20191011
  Receipt Date: 20191028
  Transmission Date: 20200122
  Serious: No
  Sender: FDA-Public Use
  Company Number: US-MYLANLABS-2019M1090699

PATIENT
  Sex: Female

DRUGS (1)
  1. NORETHINDRONE ACETATE AND ETHINYL ESTRADIOL [Suspect]
     Active Substance: ETHINYL ESTRADIOL\NORETHINDRONE ACETATE
     Indication: PRODUCT USED FOR UNKNOWN INDICATION
     Dosage: UNK
     Route: 065

REACTIONS (14)
  - Social anxiety disorder [Recovering/Resolving]
  - Vaginal haemorrhage [Recovering/Resolving]
  - Vulvovaginal dryness [Recovering/Resolving]
  - Malaise [Recovering/Resolving]
  - Mood altered [Unknown]
  - Disturbance in social behaviour [Unknown]
  - Feeling abnormal [Recovering/Resolving]
  - Mental disorder [Recovering/Resolving]
  - Cognitive disorder [Unknown]
  - Dyspepsia [Unknown]
  - General physical health deterioration [Recovering/Resolving]
  - Libido decreased [Not Recovered/Not Resolved]
  - Vulvovaginal pain [Recovering/Resolving]
  - Depression [Recovering/Resolving]

NARRATIVE: CASE EVENT DATE: 201908
